FAERS Safety Report 10640056 (Version 1)
Quarter: 2014Q4

REPORT INFORMATION
  Report Type: Spontaneous
  Country: US (occurrence: US)
  Receive Date: 20141209
  Receipt Date: 20141209
  Transmission Date: 20150529
  Serious: No
  Sender: FDA-Public Use
  Company Number: US-SHIRE-US201408032

PATIENT
  Age: 25 Year
  Sex: Male

DRUGS (1)
  1. INTUNIV [Suspect]
     Active Substance: GUANFACINE HYDROCHLORIDE
     Indication: AGGRESSION
     Dosage: UNK, UNKNOWN
     Route: 048

REACTIONS (3)
  - Aggression [Recovered/Resolved]
  - Off label use [Recovered/Resolved]
  - Mood altered [Recovered/Resolved]
